FAERS Safety Report 23449465 (Version 1)
Quarter: 2024Q1

REPORT INFORMATION
  Report Type: Spontaneous
  Country: ES (occurrence: ES)
  Receive Date: 20240129
  Receipt Date: 20240129
  Transmission Date: 20240410
  Serious: Yes (Death)
  Sender: FDA-Public Use
  Company Number: None

PATIENT
  Age: 73 Year
  Sex: Male

DRUGS (6)
  1. AZACITIDINE [Suspect]
     Active Substance: AZACITIDINE
     Indication: Acute leukaemia
     Dosage: (75MG/M2 X 7 DAYS EVERY 28 DAYS. 2ND CYCLES ADMINISTERED ONLY 2 DOSES)
     Route: 058
     Dates: start: 20231115, end: 20231224
  2. MEGESTROL [Concomitant]
     Active Substance: MEGESTROL
     Indication: Decreased appetite
     Dosage: 1 SOBRE AL DIA
     Route: 048
     Dates: start: 20231127
  3. OMEPRAZOLE [Concomitant]
     Active Substance: OMEPRAZOLE
     Indication: Prophylaxis
     Dosage: 20 MG AL DIA
     Route: 048
  4. INREQ [Concomitant]
     Indication: Benign prostatic hyperplasia
     Dosage: 1 COMPRIMIDO AL DIA
     Route: 048
  5. ALLOPURINOL [Concomitant]
     Active Substance: ALLOPURINOL
     Indication: Hyperuricaemia
     Dosage: 100 MG AL DIA
     Route: 048
  6. HYDREA [Concomitant]
     Active Substance: HYDROXYUREA
     Indication: Acute leukaemia
     Dosage: 1 CAPSULA AL DIA
     Route: 048
     Dates: start: 20231204, end: 20231224

REACTIONS (1)
  - Guillain-Barre syndrome [Fatal]

NARRATIVE: CASE EVENT DATE: 20231224
